FAERS Safety Report 13231599 (Version 1)
Quarter: 2017Q1

REPORT INFORMATION
  Report Type: Report from Study
  Country: DE (occurrence: DE)
  Receive Date: 20170214
  Receipt Date: 20170214
  Transmission Date: 20170428
  Serious: Yes (Hospitalization)
  Sender: FDA-Public Use
  Company Number: DE-JNJFOC-20140201675

PATIENT
  Age: 54 Year
  Sex: Female

DRUGS (1)
  1. GOLIMUMAB [Suspect]
     Active Substance: GOLIMUMAB
     Indication: RHEUMATOID ARTHRITIS
     Route: 058
     Dates: start: 201111

REACTIONS (6)
  - Tachyarrhythmia [Unknown]
  - Haematuria [Recovered/Resolved]
  - Stress urinary incontinence [Recovered/Resolved]
  - Cough [Recovered/Resolved]
  - Tubulointerstitial nephritis [Recovered/Resolved]
  - Goitre [Recovered/Resolved]

NARRATIVE: CASE EVENT DATE: 20130214
